FAERS Safety Report 19298698 (Version 13)
Quarter: 2022Q2

REPORT INFORMATION
  Report Type: Report from Study
  Country: GB (occurrence: GB)
  Receive Date: 20210525
  Receipt Date: 20220419
  Transmission Date: 20220721
  Serious: Yes (Hospitalization, Other)
  Sender: FDA-Public Use
  Company Number: GB-CELLTRION HEALTHCARE HUNGARY KFT-2020GB028028

PATIENT
  Age: 73 Year
  Sex: Male
  Weight: 100 kg

DRUGS (22)
  1. RITUXIMAB [Suspect]
     Active Substance: RITUXIMAB
     Indication: Mantle cell lymphoma
     Route: 041
     Dates: start: 20200309, end: 20200309
  2. RITUXIMAB [Suspect]
     Active Substance: RITUXIMAB
     Route: 041
     Dates: start: 20200303, end: 20200309
  3. CYTARABINE [Suspect]
     Active Substance: CYTARABINE
     Indication: Mantle cell lymphoma
     Dosage: MOST RECENT DOSE ON 11/MAR/2020
     Route: 040
     Dates: start: 20200309, end: 20200311
  4. CYTARABINE [Suspect]
     Active Substance: CYTARABINE
     Dosage: MOST RECENT DOSE ON 11/MAR/2020
     Route: 040
     Dates: start: 20200115, end: 20200303
  5. CYTARABINE [Suspect]
     Active Substance: CYTARABINE
     Route: 041
     Dates: start: 20200311
  6. CYTARABINE [Suspect]
     Active Substance: CYTARABINE
     Route: 040
     Dates: start: 20200303
  7. CYTARABINE [Suspect]
     Active Substance: CYTARABINE
     Dosage: (ON 11 MAR2 020, HE RECEIVED MOST RECENT DOSE OF CYTARABINE PRIOR TO EVENT ONSET, DOSAGE)
     Route: 040
     Dates: start: 20210309, end: 20210311
  8. CYTARABINE [Suspect]
     Active Substance: CYTARABINE
     Dosage: 20 MG, QD (ON 11 MAR2 020
     Route: 040
     Dates: start: 20210303
  9. CYTARABINE [Suspect]
     Active Substance: CYTARABINE
     Route: 040
     Dates: start: 20200309
  10. CYTARABINE [Suspect]
     Active Substance: CYTARABINE
     Route: 040
     Dates: start: 20210309, end: 20210311
  11. CYTARABINE [Suspect]
     Active Substance: CYTARABINE
     Dosage: 20 MG, QD (ON 11 MAR2 020
     Route: 040
     Dates: start: 20200309, end: 20210311
  12. BENDAMUSTINE [Suspect]
     Active Substance: BENDAMUSTINE
     Indication: Mantle cell lymphoma
     Route: 041
     Dates: start: 20200309, end: 20200309
  13. BENDAMUSTINE [Suspect]
     Active Substance: BENDAMUSTINE
     Route: 041
     Dates: start: 20210309
  14. BENDAMUSTINE [Suspect]
     Active Substance: BENDAMUSTINE
     Route: 042
  15. BENDAMUSTINE [Suspect]
     Active Substance: BENDAMUSTINE
     Route: 041
  16. PARSACLISIB [Suspect]
     Active Substance: PARSACLISIB
     Indication: Mantle cell lymphoma
     Dosage: MOST RECENT DOSE RECEIVED ON 03-MAR-2020)
     Route: 048
     Dates: start: 20200115
  17. MEROPENEM [Concomitant]
     Active Substance: MEROPENEM
     Indication: Decreased appetite
     Dates: start: 20200309
  18. MEROPENEM [Concomitant]
     Active Substance: MEROPENEM
     Indication: Cough
     Dates: start: 20200319
  19. MEROPENEM [Concomitant]
     Active Substance: MEROPENEM
     Indication: Malaise
     Dates: start: 20200319
  20. ACETAMINOPHEN [Concomitant]
     Active Substance: ACETAMINOPHEN
     Indication: Decreased appetite
     Dates: start: 20200309
  21. ACETAMINOPHEN [Concomitant]
     Active Substance: ACETAMINOPHEN
     Indication: Malaise
     Dates: start: 20200319
  22. ACETAMINOPHEN [Concomitant]
     Active Substance: ACETAMINOPHEN
     Indication: Cough

REACTIONS (4)
  - Neutropenic sepsis [Recovered/Resolved]
  - Pneumonia [Recovered/Resolved]
  - Off label use [Unknown]
  - Bronchitis [Recovered/Resolved]

NARRATIVE: CASE EVENT DATE: 20200321
